FAERS Safety Report 7751329-0 (Version None)
Quarter: 2011Q3

REPORT INFORMATION
  Report Type: 
  Country: None (occurrence: None)
  Receive Date: 20110914
  Receipt Date: 20110901
  Transmission Date: 20111222
  Serious: Yes (Other)
  Sender: FDA-Public Use
  Company Number: US-BAYER-2011-028889

PATIENT
  Sex: Female
  Weight: 56.4 kg

DRUGS (22)
  1. MAGNEVIST [Suspect]
  2. OMNISCAN [Suspect]
     Indication: NUCLEAR MAGNETIC RESONANCE IMAGING
     Dosage: UNK
     Dates: start: 20050510, end: 20050510
  3. METOPROLOL [Concomitant]
  4. COREG [Concomitant]
  5. PROCRIT [Concomitant]
  6. LISINOPRIL [Concomitant]
  7. MAGNEVIST [Suspect]
     Dosage: UNK
     Dates: start: 20040918, end: 20040918
  8. RENAGEL [Concomitant]
  9. CAPTOPRIL [Concomitant]
  10. NORMODYNE [Concomitant]
  11. CLONIDINE [Concomitant]
  12. MAGNEVIST [Suspect]
     Indication: NUCLEAR MAGNETIC RESONANCE IMAGING BRAIN
     Dosage: UNK
     Dates: start: 20040917, end: 20040917
  13. MAGNEVIST [Suspect]
     Indication: VENOGRAM
     Dosage: UNK
     Dates: start: 20051005, end: 20051005
  14. OMNISCAN [Suspect]
     Indication: ANGIOGRAM
     Dosage: 40 ML, ONCE
     Route: 042
     Dates: start: 20051209, end: 20051209
  15. NIFEDIPINE [Concomitant]
  16. NORVASC [Concomitant]
  17. MAGNEVIST [Suspect]
     Dosage: UNK
     Dates: start: 20050517, end: 20050517
  18. MAGNEVIST [Suspect]
     Dosage: 4 ML, ONCE
     Route: 042
     Dates: start: 20060616, end: 20060616
  19. OMNISCAN [Suspect]
     Indication: NUCLEAR MAGNETIC RESONANCE IMAGING ABDOMINAL
  20. OMNISCAN [Suspect]
  21. MAGNEVIST [Suspect]
     Indication: NUCLEAR MAGNETIC RESONANCE IMAGING
     Dosage: UNK
     Route: 042
     Dates: start: 20040911, end: 20040911
  22. MAGNEVIST [Suspect]
     Indication: ANGIOGRAM
     Dosage: UNK
     Route: 042
     Dates: start: 20040916, end: 20040916

REACTIONS (10)
  - SKIN HYPERTROPHY [None]
  - SKIN HYPERPIGMENTATION [None]
  - PAIN IN EXTREMITY [None]
  - JOINT RANGE OF MOTION DECREASED [None]
  - ARTHRALGIA [None]
  - NEPHROGENIC SYSTEMIC FIBROSIS [None]
  - TENDON DISORDER [None]
  - JOINT CONTRACTURE [None]
  - SKIN INDURATION [None]
  - ABASIA [None]
